FAERS Safety Report 15289046 (Version 1)
Quarter: 2018Q3

REPORT INFORMATION
  Report Type: Spontaneous
  Country: US (occurrence: US)
  Receive Date: 20180817
  Receipt Date: 20180817
  Transmission Date: 20181010
  Serious: Yes (Other)
  Sender: FDA-Public Use
  Company Number: US-AMGEN-USASP2018111299

PATIENT
  Age: 61 Year
  Sex: Male
  Weight: 95.24 kg

DRUGS (2)
  1. PROCRIT [Suspect]
     Active Substance: ERYTHROPOIETIN
     Indication: RED BLOOD CELL COUNT DECREASED
     Dosage: 40,000 UNITS, QWK
     Route: 058
     Dates: start: 2014
  2. LABETALOL [Concomitant]
     Active Substance: LABETALOL\LABETALOL HYDROCHLORIDE
     Indication: BLOOD PRESSURE ABNORMAL
     Dosage: 200 MG, ONCE A DAY

REACTIONS (2)
  - Drug dose omission [Unknown]
  - Haemoglobin decreased [Not Recovered/Not Resolved]

NARRATIVE: CASE EVENT DATE: 20180805
